FAERS Safety Report 5968592-9 (Version None)
Quarter: 2008Q4

REPORT INFORMATION
  Report Type: 
  Country: None (occurrence: None)
  Receive Date: 20081126
  Receipt Date: 20081119
  Transmission Date: 20090506
  Serious: Yes (Hospitalization)
  Sender: FDA-Public Use
  Company Number: CG-MERCK-0811USA03676

PATIENT
  Age: 30 Year
  Sex: Female
  Weight: 41 kg

DRUGS (1)
  1. STROMECTOL [Suspect]
     Indication: ONCHOCERCIASIS
     Route: 048
     Dates: start: 20080716

REACTIONS (9)
  - ASTHENIA [None]
  - CONJUNCTIVAL HAEMORRHAGE [None]
  - DIARRHOEA [None]
  - ENOPHTHALMOS [None]
  - PERIPHERAL COLDNESS [None]
  - PULSE ABNORMAL [None]
  - TONGUE DRY [None]
  - VOMITING [None]
  - WEIGHT DECREASED [None]
